FAERS Safety Report 8731800 (Version 2)
Quarter: 2012Q4

REPORT INFORMATION
  Report Type: Spontaneous
  Country: EC (occurrence: None)
  Receive Date: 20120801
  Receipt Date: 20120816
  Transmission Date: 20130627
  Serious: Yes (Death)
  Sender: FDA-Public Use
  Company Number: ENTC2012-0326

PATIENT
  Age: 65 Year
  Sex: Male

DRUGS (1)
  1. STALEVO [Suspect]
     Indication: PARKINSON^S DISEASE
     Dosage: 150/37.5/200 MG ORAL
     Route: 048
     Dates: start: 20100105

REACTIONS (2)
  - Death [None]
  - Respiratory arrest [None]
